FAERS Safety Report 9819827 (Version 1)
Quarter: 2014Q1

REPORT INFORMATION
  Report Type: Spontaneous
  Country: US (occurrence: None)
  Receive Date: 20140114
  Receipt Date: 20140114
  Transmission Date: 20141002
  Serious: Yes (Other)
  Sender: FDA-Public Use
  Company Number: 2013CT000123

PATIENT
  Age: 27 Year
  Sex: Female
  Weight: 77.11 kg

DRUGS (3)
  1. KORLYM [Suspect]
     Indication: HYPERGLYCAEMIA
     Route: 048
     Dates: start: 20131113, end: 201312
  2. KORLYM [Suspect]
     Indication: CUSHING^S SYNDROME
     Route: 048
     Dates: start: 20131113, end: 201312
  3. SPIRONOLACTONE [Concomitant]
     Indication: CUSHING^S SYNDROME
     Route: 048
     Dates: start: 20131113, end: 201312

REACTIONS (1)
  - Vaginal haemorrhage [None]
